FAERS Safety Report 8454784-6 (Version None)
Quarter: 2012Q2

REPORT INFORMATION
  Report Type: 
  Country: None (occurrence: None)
  Receive Date: 20120621
  Receipt Date: 20120611
  Transmission Date: 20120825
  Serious: Yes (Other)
  Sender: FDA-Public Use
  Company Number: US-JNJFOC-20120605513

PATIENT
  Age: 41 Year
  Sex: Female

DRUGS (5)
  1. REMICADE [Suspect]
     Indication: CROHN'S DISEASE
     Route: 042
  2. BENADRYL [Concomitant]
     Indication: PREMEDICATION
     Route: 065
  3. ACETAMINOPHEN [Concomitant]
     Indication: PREMEDICATION
     Route: 065
  4. REMICADE [Suspect]
     Route: 042
  5. SOLU-MEDROL [Concomitant]
     Indication: PREMEDICATION
     Route: 065

REACTIONS (10)
  - ERYTHEMA [None]
  - INFUSION RELATED REACTION [None]
  - DYSPNOEA [None]
  - MYOPATHY [None]
  - ARTHRALGIA [None]
  - SWOLLEN TONGUE [None]
  - HYPOTENSION [None]
  - FOOD ALLERGY [None]
  - PRURITUS [None]
  - ANAEMIA [None]
